FAERS Safety Report 18611815 (Version 1)
Quarter: 2020Q4

REPORT INFORMATION
  Report Type: Spontaneous
  Country: US (occurrence: US)
  Receive Date: 20201208
  Receipt Date: 20201208
  Transmission Date: 20210114
  Serious: Yes (Disabling)
  Sender: FDA-Public Use
  Company Number: None

PATIENT
  Age: 40 Year
  Sex: Female
  Weight: 63 kg

DRUGS (3)
  1. ZYPREXA [Suspect]
     Active Substance: OLANZAPINE
     Indication: PRODUCT USED FOR UNKNOWN INDICATION
     Dosage: ?          OTHER FREQUENCY:IN THE EVENING;?
     Route: 048
     Dates: start: 20200108, end: 20200515
  2. CHLOROPHYLL [Concomitant]
  3. BACH^S RESCUE REMEDY FOR KIDS [Concomitant]

REACTIONS (1)
  - Victim of crime [None]

NARRATIVE: CASE EVENT DATE: 20200415
